FAERS Safety Report 8050110-5 (Version None)
Quarter: 2012Q1

REPORT INFORMATION
  Report Type: 
  Country: None (occurrence: None)
  Receive Date: 20120117
  Receipt Date: 20120110
  Transmission Date: 20120608
  Serious: Yes (Death, Hospitalization)
  Sender: FDA-Public Use
  Company Number: LB-MERCK-1112USA02569

PATIENT
  Age: 68 Year
  Sex: Male
  Weight: 130 kg

DRUGS (3)
  1. PRIMAXIN [Suspect]
     Indication: INFECTION
     Route: 051
     Dates: start: 20111201, end: 20111201
  2. PRIMAXIN [Suspect]
     Route: 051
     Dates: start: 20111212, end: 20111212
  3. PRIMPERAN TAB [Concomitant]
     Route: 065
     Dates: end: 20111211

REACTIONS (3)
  - CARDIAC ARREST [None]
  - TREMOR [None]
  - CONVULSION [None]
